FAERS Safety Report 18084267 (Version 27)
Quarter: 2022Q4

REPORT INFORMATION
  Report Type: Spontaneous
  Country: CA (occurrence: CA)
  Receive Date: 20200729
  Receipt Date: 20221121
  Transmission Date: 20230113
  Serious: Yes (Hospitalization, Other)
  Sender: FDA-Public Use
  Company Number: CA-CELLTRION INC.-2019CA028259

PATIENT

DRUGS (32)
  1. INFLECTRA [Suspect]
     Active Substance: INFLIXIMAB-DYYB
     Indication: Colitis ulcerative
     Dosage: 5 MG/KG, 0, 2, 6, THEN EVERY 8 WEEKS
     Route: 042
     Dates: start: 20190822, end: 20200214
  2. INFLECTRA [Suspect]
     Active Substance: INFLIXIMAB-DYYB
     Dosage: 5 MG/KG, 0, 2, 6, THEN EVERY 8 WEEKS
     Route: 042
     Dates: start: 20191127
  3. INFLECTRA [Suspect]
     Active Substance: INFLIXIMAB-DYYB
     Dosage: 5 MG/KG, 0, 2, 6, THEN EVERY 8 WEEKS
     Route: 042
     Dates: start: 20200214
  4. INFLECTRA [Suspect]
     Active Substance: INFLIXIMAB-DYYB
     Dosage: 10 MG/KG, Q (EVERY) 0, 2, 6 WEEKS (RE-INDUCTION), THEN EVERY 4 WEEKS
     Route: 042
     Dates: start: 20200312
  5. INFLECTRA [Suspect]
     Active Substance: INFLIXIMAB-DYYB
     Dosage: 10 MG/KG, EVERY 8 WEEKS
     Route: 042
     Dates: start: 20200408, end: 20201123
  6. INFLECTRA [Suspect]
     Active Substance: INFLIXIMAB-DYYB
     Dosage: 10 MG/KG, EVERY 8 WEEKS
     Route: 042
     Dates: start: 20200408
  7. INFLECTRA [Suspect]
     Active Substance: INFLIXIMAB-DYYB
     Dosage: 10 MG/KG, EVERY 8 WEEKS
     Route: 042
     Dates: start: 20200603
  8. INFLECTRA [Suspect]
     Active Substance: INFLIXIMAB-DYYB
     Dosage: 10 MG/KG, EVERY 8 WEEKS
     Route: 042
     Dates: start: 20200730
  9. INFLECTRA [Suspect]
     Active Substance: INFLIXIMAB-DYYB
     Dosage: 10 MG/KG, EVERY 8 WEEKS
     Route: 042
     Dates: start: 20200928
  10. INFLECTRA [Suspect]
     Active Substance: INFLIXIMAB-DYYB
     Dosage: 10 MG/KG, EVERY 8 WEEKS
     Route: 042
     Dates: start: 20201123
  11. INFLECTRA [Suspect]
     Active Substance: INFLIXIMAB-DYYB
     Dosage: 10 MG/KG, 0, 2, 6 WEEKS (RE-INDUCTION), THEN EVERY 4 WEEKS
     Route: 042
     Dates: start: 20210312
  12. INFLECTRA [Suspect]
     Active Substance: INFLIXIMAB-DYYB
     Dosage: 10 MG/KG, 0, 2, 6 WEEKS (RE-INDUCTION), THEN EVERY 4 WEEKS
     Route: 042
     Dates: start: 20210521
  13. INFLECTRA [Suspect]
     Active Substance: INFLIXIMAB-DYYB
     Dosage: 10 MG/KG, 0, 2, 6 WEEKS (RE-INDUCTION), THEN EVERY 4 WEEKS
     Route: 042
     Dates: start: 20210715
  14. INFLECTRA [Suspect]
     Active Substance: INFLIXIMAB-DYYB
     Dosage: 10 MG/KG, 0, 2, 6 WEEKS (RE-INDUCTION), THEN EVERY 4 WEEKS
     Route: 042
     Dates: start: 20210911
  15. INFLECTRA [Suspect]
     Active Substance: INFLIXIMAB-DYYB
     Dosage: 10 MG/KG, 0, 2, 6 WEEKS (RE-INDUCTION), THEN EVERY 4 WEEKS
     Route: 042
     Dates: start: 20211007
  16. INFLECTRA [Suspect]
     Active Substance: INFLIXIMAB-DYYB
     Dosage: 10 MG/KG, 0, 2, 6 WEEKS (RE-INDUCTION), THEN EVERY 4 WEEKS
     Route: 042
     Dates: start: 20211111
  17. INFLECTRA [Suspect]
     Active Substance: INFLIXIMAB-DYYB
     Dosage: 10 MG/KG, 0, 2, 6 WEEKS (RE-INDUCTION), THEN EVERY 4 WEEKS
     Route: 042
     Dates: start: 20211223
  18. INFLECTRA [Suspect]
     Active Substance: INFLIXIMAB-DYYB
     Dosage: 10 MG/KG, 0, 2, 6 WEEKS (RE-INDUCTION), THEN EVERY 4 WEEKS
     Route: 042
     Dates: start: 20220117
  19. INFLECTRA [Suspect]
     Active Substance: INFLIXIMAB-DYYB
     Dosage: 600 MG
     Route: 042
     Dates: start: 20220219
  20. INFLECTRA [Suspect]
     Active Substance: INFLIXIMAB-DYYB
     Dosage: 10 MG/KG, 0, 2, 6 WEEKS (RE-INDUCTION), THEN EVERY 4 WEEKS
     Route: 042
     Dates: start: 20220319
  21. INFLECTRA [Suspect]
     Active Substance: INFLIXIMAB-DYYB
     Dosage: 10 MG/KG, 0, 2, 6 WEEKS (RE-INDUCTION), THEN EVERY 4 WEEKS
     Route: 042
     Dates: start: 20220514
  22. INFLECTRA [Suspect]
     Active Substance: INFLIXIMAB-DYYB
     Dosage: 10 MG/KG, 0, 2, 6 WEEKS (RE-INDUCTION), THEN EVERY 4 WEEKS
     Route: 042
     Dates: start: 20220611
  23. INFLECTRA [Suspect]
     Active Substance: INFLIXIMAB-DYYB
     Dosage: 10 MG/KG, 0, 2, 6 WEEKS (RE-INDUCTION), THEN EVERY 4 WEEKS
     Route: 042
     Dates: start: 20220709
  24. INFLECTRA [Suspect]
     Active Substance: INFLIXIMAB-DYYB
     Dosage: 10 MG/KG, 0, 2, 6 WEEKS (RE-INDUCTION), THEN EVERY 4 WEEKS
     Route: 042
     Dates: start: 20220806
  25. INFLECTRA [Suspect]
     Active Substance: INFLIXIMAB-DYYB
     Dosage: 10 MG/KG, 0, 2, 6 WEEKS (RE-INDUCTION), THEN EVERY 4 WEEKS
     Route: 042
     Dates: start: 20220806
  26. INFLECTRA [Suspect]
     Active Substance: INFLIXIMAB-DYYB
     Dosage: 10 MG/KG, 0, 2, 6 WEEKS (RE-INDUCTION), THEN EVERY 4 WEEKS
     Route: 042
     Dates: start: 20221112
  27. PREDNISONE [Concomitant]
     Active Substance: PREDNISONE
     Dosage: UNK
     Route: 048
     Dates: start: 20190827
  28. CHOLECALCIFEROL [Concomitant]
     Active Substance: CHOLECALCIFEROL
     Dosage: UNK
     Route: 048
     Dates: start: 2019
  29. CHOLECALCIFEROL [Concomitant]
     Active Substance: CHOLECALCIFEROL
     Dosage: 1 DF
     Route: 048
  30. CHOLECALCIFEROL [Concomitant]
     Active Substance: CHOLECALCIFEROL
     Dosage: 1 DF DOSAGE INFORMATION NOT AVAILABLE
     Route: 048
     Dates: start: 2019
  31. ZOLOFT [Concomitant]
     Active Substance: SERTRALINE HYDROCHLORIDE
     Dosage: UNK
  32. ZOLOFT [Concomitant]
     Active Substance: SERTRALINE HYDROCHLORIDE
     Dosage: 1 DF DOSAGE INFORMATION NOT PROVIDED
     Route: 065

REACTIONS (18)
  - Nausea [Recovering/Resolving]
  - Vomiting [Recovering/Resolving]
  - Colitis ulcerative [Unknown]
  - Foot fracture [Unknown]
  - Abortion spontaneous [Unknown]
  - Weight increased [Not Recovered/Not Resolved]
  - Maternal exposure during pregnancy [Unknown]
  - Off label use [Unknown]
  - Off label use [Unknown]
  - Off label use [Unknown]
  - Intentional product use issue [Unknown]
  - Inappropriate schedule of product administration [Unknown]
  - Incorrect dose administered [Unknown]
  - Heavy menstrual bleeding [Unknown]
  - Condition aggravated [Recovering/Resolving]
  - Abdominal pain [Unknown]
  - COVID-19 [Recovered/Resolved]
  - Constipation [Unknown]

NARRATIVE: CASE EVENT DATE: 20200214
